FAERS Safety Report 14625665 (Version 2)
Quarter: 2018Q2

REPORT INFORMATION
  Report Type: Spontaneous
  Country: US (occurrence: US)
  Receive Date: 20180312
  Receipt Date: 20180403
  Transmission Date: 20180711
  Serious: No
  Sender: FDA-Public Use
  Company Number: US-GLAXOSMITHKLINE-US2018040202

PATIENT
  Age: 65 Year
  Sex: Female
  Weight: 112.47 kg

DRUGS (9)
  1. BACTROBAN [Suspect]
     Active Substance: MUPIROCIN\MUPIROCIN CALCIUM
     Indication: NASAL SEPTUM PERFORATION
     Dosage: UNK
     Route: 061
     Dates: start: 201802, end: 201802
  2. GABAPENTIN. [Concomitant]
     Active Substance: GABAPENTIN
  3. LEVOTHYROXINE. [Concomitant]
     Active Substance: LEVOTHYROXINE
  4. LISINOPRIL HCTZ [Concomitant]
     Active Substance: HYDROCHLOROTHIAZIDE\LISINOPRIL
  5. MELOXICAM. [Concomitant]
     Active Substance: MELOXICAM
  6. OMEPRAZOLE. [Concomitant]
     Active Substance: OMEPRAZOLE
  7. BACTROBAN [Concomitant]
     Active Substance: MUPIROCIN\MUPIROCIN CALCIUM
  8. OXYBUTIN [Concomitant]
     Active Substance: OXYBUTYNIN
  9. BACTROBAN [Suspect]
     Active Substance: MUPIROCIN\MUPIROCIN CALCIUM
     Indication: INFECTION PROPHYLAXIS

REACTIONS (4)
  - Dyspnoea [Recovering/Resolving]
  - Nasal discomfort [Recovering/Resolving]
  - Product use in unapproved indication [Unknown]
  - Nasal inflammation [Recovering/Resolving]

NARRATIVE: CASE EVENT DATE: 201802
